FAERS Safety Report 4683208-X (Version None)
Quarter: 2005Q2

REPORT INFORMATION
  Report Type: 
  Country: None (occurrence: None)
  Receive Date: 20050602
  Receipt Date: 20050309
  Transmission Date: 20051028
  Serious: No
  Sender: FDA-Public Use
  Company Number: USA050392771

PATIENT
  Age: 29 Year
  Sex: Female

DRUGS (2)
  1. CYMBALTA [Suspect]
     Indication: FIBROMYALGIA
     Dosage: 30 MG DAY
     Dates: start: 20050309
  2. VITAMIN B COMPLEX CAP [Concomitant]

REACTIONS (5)
  - DIZZINESS [None]
  - HOT FLUSH [None]
  - NAUSEA [None]
  - PANIC ATTACK [None]
  - TREMOR [None]
